FAERS Safety Report 10440047 (Version 1)
Quarter: 2014Q3

REPORT INFORMATION
  Report Type: Spontaneous
  Country: US (occurrence: US)
  Receive Date: 20140908
  Receipt Date: 20140908
  Transmission Date: 20150326
  Serious: No
  Sender: FDA-Public Use
  Company Number: US-BRISTOL-MYERS SQUIBB COMPANY-20681904

PATIENT
  Age: 7 Year
  Sex: Female
  Weight: 37.19 kg

DRUGS (2)
  1. RITALIN [Concomitant]
     Active Substance: METHYLPHENIDATE HYDROCHLORIDE
     Indication: ATTENTION DEFICIT/HYPERACTIVITY DISORDER
  2. ABILIFY [Suspect]
     Active Substance: ARIPIPRAZOLE
     Indication: MOOD SWINGS

REACTIONS (5)
  - Thirst [Unknown]
  - Chest pain [Unknown]
  - Weight increased [Unknown]
  - Headache [Unknown]
  - Hunger [Unknown]
